FAERS Safety Report 6713710-8 (Version None)
Quarter: 2010Q2

REPORT INFORMATION
  Report Type: 
  Country: None (occurrence: None)
  Receive Date: 20100506
  Receipt Date: 20100426
  Transmission Date: 20101027
  Serious: Yes (Other)
  Sender: FDA-Public Use
  Company Number: CA-PFIZER INC-2010052381

PATIENT
  Age: 61 Year
  Sex: Female

DRUGS (1)
  1. ZELDOX [Suspect]
     Dosage: UNK
     Route: 048
     Dates: start: 20090601, end: 20091201

REACTIONS (6)
  - ALOPECIA [None]
  - BALANCE DISORDER [None]
  - DIZZINESS [None]
  - DYSKINESIA [None]
  - FALL [None]
  - PRESYNCOPE [None]
